FAERS Safety Report 10901129 (Version 1)
Quarter: 2015Q1

REPORT INFORMATION
  Report Type: Spontaneous
  Country: US (occurrence: US)
  Receive Date: 20150310
  Receipt Date: 20150310
  Transmission Date: 20150721
  Serious: Yes (Other)
  Sender: FDA-Public Use
  Company Number: US-TEVA-545374USA

PATIENT
  Sex: Female

DRUGS (1)
  1. COPAXONE [Suspect]
     Active Substance: GLATIRAMER ACETATE
     Indication: MULTIPLE SCLEROSIS
     Dates: start: 2014

REACTIONS (6)
  - Muscular weakness [Unknown]
  - Tinea pedis [Unknown]
  - Diplopia [Unknown]
  - Cerebrovascular accident [Unknown]
  - Pain [Unknown]
  - Facial paresis [Unknown]

NARRATIVE: CASE EVENT DATE: 2015
